FAERS Safety Report 5071268-6 (Version None)
Quarter: 2006Q3

REPORT INFORMATION
  Report Type: 
  Country: None (occurrence: None)
  Receive Date: 20060714
  Receipt Date: 20060428
  Transmission Date: 20061208
  Serious: No
  Sender: FDA-Public Use
  Company Number: 2006SP001870

PATIENT
  Age: 80 Year
  Sex: Male
  Weight: 83.9154 kg

DRUGS (7)
  1. LUNESTA [Suspect]
     Indication: INSOMNIA
     Dosage: 3 MG; 1X; ORAL
     Route: 048
     Dates: start: 20060426, end: 20060426
  2. LEVOXYL [Concomitant]
  3. GLYBURIDE [Concomitant]
  4. NEXIUM [Concomitant]
  5. ATORVASTATIN CALCIUM [Concomitant]
  6. TRICOR [Concomitant]
  7. ASPIRIN [Concomitant]

REACTIONS (4)
  - DIZZINESS [None]
  - HEADACHE [None]
  - HYPOACUSIS [None]
  - TINNITUS [None]
